FAERS Safety Report 11856734 (Version 3)
Quarter: 2018Q4

REPORT INFORMATION
  Report Type: Spontaneous
  Country: US (occurrence: US)
  Receive Date: 20151221
  Receipt Date: 20181024
  Transmission Date: 20190204
  Serious: Yes (Hospitalization, Other)
  Sender: FDA-Public Use
  Company Number: US-DSJP-DSU-2015-128661

PATIENT

DRUGS (7)
  1. AMLODIPINE [Concomitant]
     Active Substance: AMLODIPINE BESYLATE
     Indication: PRODUCT USED FOR UNKNOWN INDICATION
     Dosage: 10 MG, QD
     Dates: start: 2003, end: 2006
  2. BENICAR [Suspect]
     Active Substance: OLMESARTAN MEDOXOMIL
     Dosage: 40 MG, QD
     Dates: end: 2007
  3. BENICAR HCT [Suspect]
     Active Substance: HYDROCHLOROTHIAZIDE\OLMESARTAN MEDOXOMIL
     Indication: HYPERTENSION
     Dosage: 40/12.5 MG, BID
     Dates: end: 2007
  4. CHOLESTYRAMINE. [Concomitant]
     Active Substance: CHOLESTYRAMINE
     Indication: PRODUCT USED FOR UNKNOWN INDICATION
     Dosage: 4 MG, UNK
  5. BENICAR [Suspect]
     Active Substance: OLMESARTAN MEDOXOMIL
     Indication: HYPERTENSION
     Dosage: 40 MG, QD
     Dates: start: 2004, end: 20051213
  6. BENICAR HCT [Suspect]
     Active Substance: HYDROCHLOROTHIAZIDE\OLMESARTAN MEDOXOMIL
     Dosage: 20/12.5 MG, QD
     Route: 048
     Dates: start: 2004, end: 2007
  7. COLCHICINE. [Concomitant]
     Active Substance: COLCHICINE
     Indication: PRODUCT USED FOR UNKNOWN INDICATION
     Dosage: 0.6 MG, BID
     Route: 048
     Dates: start: 2004, end: 2010

REACTIONS (14)
  - Respiratory alkalosis [Unknown]
  - Abdominal lymphadenopathy [Unknown]
  - Cholelithiasis [Unknown]
  - Constipation [Not Recovered/Not Resolved]
  - Haemorrhoids [Not Recovered/Not Resolved]
  - Hepatic steatosis [Unknown]
  - Atrial fibrillation [Recovered/Resolved]
  - Sprue-like enteropathy [Recovering/Resolving]
  - Pancreatitis [Unknown]
  - Syncope [Recovered/Resolved]
  - Diverticulum [Unknown]
  - Product administration error [Recovered/Resolved]
  - Acute kidney injury [Unknown]
  - Large intestine polyp [Unknown]

NARRATIVE: CASE EVENT DATE: 200406
